FAERS Safety Report 9393378 (Version 2)
Quarter: 2013Q3

REPORT INFORMATION
  Report Type: Spontaneous
  Country: GB (occurrence: GB)
  Receive Date: 20130710
  Receipt Date: 20130719
  Transmission Date: 20140515
  Serious: Yes (Other)
  Sender: FDA-Public Use
  Company Number: GB-PFIZER INC-2013198990

PATIENT
  Age: 48 Year
  Sex: Male
  Weight: 96 kg

DRUGS (5)
  1. ATORVASTATIN CALCIUM [Suspect]
     Indication: MYOCARDIAL INFARCTION
     Dosage: 80 MG, UNK
     Route: 048
     Dates: start: 20111109
  2. BISOPROLOL [Concomitant]
     Dosage: UNK
  3. RAMIPRIL [Concomitant]
     Dosage: UNK
  4. ASPIRIN [Concomitant]
     Dosage: UNK
  5. LANSOPRAZOLE [Concomitant]
     Dosage: UNK

REACTIONS (3)
  - Confusional state [Recovering/Resolving]
  - Memory impairment [Recovering/Resolving]
  - Muscular weakness [Recovering/Resolving]
